FAERS Safety Report 23664792 (Version 2)
Quarter: 2024Q1

REPORT INFORMATION
  Report Type: Spontaneous
  Country: ES (occurrence: ES)
  Receive Date: 20240322
  Receipt Date: 20240328
  Transmission Date: 20240410
  Serious: Yes (Hospitalization, Other)
  Sender: FDA-Public Use
  Company Number: ES-Eisai-EC-2024-161980

PATIENT
  Age: 8 Year
  Sex: Male
  Weight: 22 kg

DRUGS (5)
  1. INOVELON [Suspect]
     Active Substance: RUFINAMIDE
     Indication: Epilepsy
     Route: 048
     Dates: start: 20240116, end: 202403
  2. TACROLIMUS [Interacting]
     Active Substance: TACROLIMUS
     Indication: Heart transplant
     Dosage: DOSE AND FREQUENCY UNKNOWN.
     Route: 048
     Dates: end: 2024
  3. TACROLIMUS [Interacting]
     Active Substance: TACROLIMUS
     Dosage: DOSE INCREASED.
     Route: 048
     Dates: start: 2024
  4. MYCOPHENOLATE MOFETIL [Interacting]
     Active Substance: MYCOPHENOLATE MOFETIL
     Indication: Heart transplant
     Dosage: 2 ML (400 MG)/8 HOURS.
     Route: 048
  5. LAMOTRIGINE [Concomitant]
     Active Substance: LAMOTRIGINE
     Indication: Product used for unknown indication
     Route: 065

REACTIONS (7)
  - Heart transplant rejection [Recovering/Resolving]
  - Cardiac failure [Unknown]
  - Nausea [Recovering/Resolving]
  - Vomiting [Recovering/Resolving]
  - Malaise [Unknown]
  - Immunosuppressant drug level decreased [Unknown]
  - Drug interaction [Unknown]

NARRATIVE: CASE EVENT DATE: 20240129
